FAERS Safety Report 6144923-4 (Version None)
Quarter: 2009Q2

REPORT INFORMATION
  Report Type: 
  Country: None (occurrence: None)
  Receive Date: 20090406
  Receipt Date: 20090325
  Transmission Date: 20091009
  Serious: Yes (Hospitalization, Disabling)
  Sender: FDA-Public Use
  Company Number: US-MERCK-0811USA01206

PATIENT
  Age: 63 Year
  Sex: Female

DRUGS (6)
  1. FOSAMAX [Suspect]
     Indication: OSTEOPOROSIS
     Route: 048
     Dates: start: 20020901
  2. FOSAMAX [Suspect]
     Route: 048
     Dates: start: 20021201, end: 20040201
  3. FOSAMAX [Suspect]
     Route: 048
     Dates: start: 20040804, end: 20070401
  4. FOSAMAX [Suspect]
     Indication: OSTEOPENIA
     Route: 048
     Dates: start: 20020901
  5. FOSAMAX [Suspect]
     Route: 048
     Dates: start: 20021201, end: 20040201
  6. FOSAMAX [Suspect]
     Route: 048
     Dates: start: 20040804, end: 20070401

REACTIONS (21)
  - ABSCESS [None]
  - AMNESIA [None]
  - ARTHRALGIA [None]
  - BENIGN BREAST NEOPLASM [None]
  - BODY HEIGHT DECREASED [None]
  - CLAVICLE FRACTURE [None]
  - DENTAL CARIES [None]
  - FALL [None]
  - GINGIVAL DISORDER [None]
  - HAND FRACTURE [None]
  - HORMONE LEVEL ABNORMAL [None]
  - HYPERLIPIDAEMIA [None]
  - HYPERTENSION [None]
  - JAW DISORDER [None]
  - LOOSE BODY IN JOINT [None]
  - MELANOCYTIC NAEVUS [None]
  - MENISCUS LESION [None]
  - PATELLOFEMORAL PAIN SYNDROME [None]
  - PHARYNGITIS [None]
  - SPINAL COMPRESSION FRACTURE [None]
  - SPINAL DISORDER [None]
